FAERS Safety Report 24556453 (Version 3)
Quarter: 2024Q4

REPORT INFORMATION
  Report Type: Spontaneous
  Country: US (occurrence: US)
  Receive Date: 20241028
  Receipt Date: 20241210
  Transmission Date: 20250114
  Serious: No
  Sender: CSL BEHRING
  Company Number: US-BEH-2024181452

PATIENT
  Age: 69 Year
  Sex: Female

DRUGS (4)
  1. HIZENTRA [Suspect]
     Active Substance: HUMAN IMMUNOGLOBULIN G
     Indication: Chronic inflammatory demyelinating polyradiculoneuropathy
     Dosage: SINCE YEARS, UNK
     Route: 058
  2. HIZENTRA [Suspect]
     Active Substance: HUMAN IMMUNOGLOBULIN G
     Dosage: 12 G (STRENGHT: 10G)
     Route: 058
     Dates: start: 20241007, end: 20241007
  3. HIZENTRA [Suspect]
     Active Substance: HUMAN IMMUNOGLOBULIN G
     Dosage: 12G (STRENGHT: 2G)
     Route: 058
     Dates: start: 20241007, end: 20241007
  4. HIZENTRA [Suspect]
     Active Substance: HUMAN IMMUNOGLOBULIN G
     Dosage: 10 G, QW(STRENGHT: 20 PERCENT)
     Route: 058
     Dates: start: 20241118

REACTIONS (7)
  - Pain [Recovered/Resolved]
  - Infusion site pain [Recovered/Resolved]
  - Underdose [Unknown]
  - Infusion related reaction [Recovering/Resolving]
  - Infusion site haematoma [Recovering/Resolving]
  - Weight decreased [Unknown]
  - Therapy change [Unknown]

NARRATIVE: CASE EVENT DATE: 20240101
